FAERS Safety Report 9394071 (Version 1)
Quarter: 2013Q3

REPORT INFORMATION
  Report Type: Spontaneous
  Country: US (occurrence: US)
  Receive Date: 20130710
  Receipt Date: 20130710
  Transmission Date: 20140515
  Serious: Yes (Other)
  Sender: FDA-Public Use
  Company Number: US-FRI-1000046449

PATIENT
  Age: 49 Year
  Sex: Male

DRUGS (5)
  1. CELEXA [Suspect]
     Indication: ANXIETY
     Route: 048
     Dates: start: 200111, end: 2002
  2. NEURONTIN [Suspect]
  3. DEPAKOTE [Concomitant]
  4. REGLAN [Concomitant]
  5. REMERON [Concomitant]
     Indication: ANXIETY

REACTIONS (7)
  - Suicidal ideation [Recovered/Resolved]
  - Crying [Recovered/Resolved]
  - Fatigue [Not Recovered/Not Resolved]
  - Asthenia [Not Recovered/Not Resolved]
  - Decreased appetite [Not Recovered/Not Resolved]
  - Decreased interest [Not Recovered/Not Resolved]
  - Off label use [Recovered/Resolved]
